FAERS Safety Report 4765522-2 (Version None)
Quarter: 2005Q3

REPORT INFORMATION
  Report Type: 
  Country: None (occurrence: None)
  Receive Date: 20050906
  Receipt Date: 20050823
  Transmission Date: 20060218
  Serious: Yes (Other)
  Sender: FDA-Public Use
  Company Number: 2005120421

PATIENT
  Sex: Female

DRUGS (3)
  1. DIFLUCAN [Suspect]
     Indication: PROPHYLAXIS
     Dosage: ORAL
     Route: 048
     Dates: start: 20050101
  2. ERYTHROMYCIN [Suspect]
     Indication: ILL-DEFINED DISORDER
     Dosage: ORAL
     Route: 048
     Dates: start: 20050101
  3. IBUPROFEN-PRN (IBUPROFEN) [Concomitant]

REACTIONS (6)
  - DRUG INTERACTION [None]
  - DYSPNOEA [None]
  - FLUSHING [None]
  - INJURY [None]
  - JAW FRACTURE [None]
  - TACHYCARDIA [None]
